FAERS Safety Report 12045544 (Version 1)
Quarter: 2016Q1

REPORT INFORMATION
  Report Type: Report from Study
  Country: US (occurrence: US)
  Receive Date: 20160208
  Receipt Date: 20160208
  Transmission Date: 20160526
  Serious: Yes (Death, Hospitalization, Other)
  Sender: FDA-Public Use
  Company Number: US-BAYER-2015-430441

PATIENT
  Age: 68 Year
  Sex: Male

DRUGS (8)
  1. SPIRONOLACTONE. [Concomitant]
     Active Substance: SPIRONOLACTONE
  2. NEXAVAR [Suspect]
     Active Substance: SORAFENIB
     Indication: METASTASES TO LIVER
     Dosage: 200 MG, BID
     Route: 048
     Dates: start: 20150910, end: 20150917
  3. NEXAVAR [Suspect]
     Active Substance: SORAFENIB
     Indication: METASTASES TO LIVER
     Dosage: 400 MG, BID
     Route: 048
     Dates: start: 201509, end: 2015
  4. LOPERAMIDE [Concomitant]
     Active Substance: LOPERAMIDE
  5. NEXAVAR [Suspect]
     Active Substance: SORAFENIB
     Indication: METASTASES TO LIVER
     Dosage: 400 MG, BID
     Route: 048
     Dates: start: 2015, end: 20151212
  6. GABAPENTIN. [Concomitant]
     Active Substance: GABAPENTIN
  7. LYRICA [Concomitant]
     Active Substance: PREGABALIN
  8. FUROSEMIDE. [Concomitant]
     Active Substance: FUROSEMIDE

REACTIONS (11)
  - Off label use [Recovered/Resolved]
  - Death [Fatal]
  - Hepatic cirrhosis [None]
  - Localised infection [None]
  - Gangrene [None]
  - Skin ulcer [None]
  - Burning sensation [None]
  - Dry skin [Not Recovered/Not Resolved]
  - Skin exfoliation [Not Recovered/Not Resolved]
  - Osteomyelitis [None]
  - Palmar-plantar erythrodysaesthesia syndrome [Not Recovered/Not Resolved]

NARRATIVE: CASE EVENT DATE: 2015
